FAERS Safety Report 12056656 (Version 2)
Quarter: 2016Q1

REPORT INFORMATION
  Report Type: Report from Study
  Country: US (occurrence: US)
  Receive Date: 20160209
  Receipt Date: 20160307
  Transmission Date: 20160526
  Serious: Yes (Hospitalization)
  Sender: FDA-Public Use
  Company Number: US-ACTELION-A-NJ2016-130955

PATIENT
  Age: 62 Year
  Sex: Male

DRUGS (2)
  1. SILDENAFIL. [Concomitant]
     Active Substance: SILDENAFIL
  2. TRACLEER [Suspect]
     Active Substance: BOSENTAN
     Indication: PULMONARY ARTERIAL HYPERTENSION
     Dosage: UNK
     Route: 048
     Dates: start: 20090130

REACTIONS (5)
  - Road traffic accident [Unknown]
  - Scleroderma [Not Recovered/Not Resolved]
  - Cervical vertebral fracture [Unknown]
  - Spinal fusion surgery [Unknown]
  - Cardiac disorder [Not Recovered/Not Resolved]

NARRATIVE: CASE EVENT DATE: 20160126
